FAERS Safety Report 19089034 (Version 1)
Quarter: 2021Q2

REPORT INFORMATION
  Report Type: Spontaneous
  Country: US (occurrence: US)
  Receive Date: 20210403
  Receipt Date: 20210403
  Transmission Date: 20210717
  Serious: No
  Sender: FDA-Public Use
  Company Number: US-ORGANON-O2103USA001996

PATIENT
  Age: 21 Year
  Sex: Female
  Weight: 79.37 kg

DRUGS (1)
  1. NEXPLANON [Suspect]
     Active Substance: ETONOGESTREL
     Indication: CONTRACEPTION
     Dosage: ABOUT 2 YEARS AGO, 1 ROD EVERY 3 YEARS
     Route: 059
     Dates: start: 2019

REACTIONS (6)
  - Fungal infection [Unknown]
  - Amenorrhoea [Recovered/Resolved]
  - Polymenorrhoea [Unknown]
  - Intermenstrual bleeding [Unknown]
  - Menstruation irregular [Unknown]
  - Ureaplasma infection [Recovered/Resolved]

NARRATIVE: CASE EVENT DATE: 2019
